FAERS Safety Report 15396291 (Version 1)
Quarter: 2018Q3

REPORT INFORMATION
  Report Type: Spontaneous
  Country: US (occurrence: US)
  Receive Date: 20180912
  Receipt Date: 20180912
  Transmission Date: 20181010
  Serious: No
  Sender: FDA-Public Use
  Company Number: None

PATIENT
  Age: 67 Year
  Sex: Male
  Weight: 77.11 kg

DRUGS (1)
  1. VALSARTAN. [Suspect]
     Active Substance: VALSARTAN
     Indication: HYPERTENSION
     Dosage: ?          QUANTITY:90 TOT ? TOTAL;OTHER FREQUENCY:1 TABLET DAILY;?
     Route: 048
     Dates: start: 20180625, end: 20180730

REACTIONS (2)
  - Depressed mood [None]
  - Mood swings [None]

NARRATIVE: CASE EVENT DATE: 20180702
